FAERS Safety Report 17263072 (Version 5)
Quarter: 2020Q3

REPORT INFORMATION
  Report Type: Spontaneous
  Country: DE (occurrence: DE)
  Receive Date: 20200113
  Receipt Date: 20200914
  Transmission Date: 20201102
  Serious: Yes (Life-Threatening, Hospitalization, Other)
  Sender: FDA-Public Use
  Company Number: DE-MYLANLABS-2020M1003422

PATIENT
  Sex: Male
  Weight: 100 kg

DRUGS (24)
  1. TAMSULOSIN [Concomitant]
     Active Substance: TAMSULOSIN
     Dosage: 0.4 MILLIGRAM, QD
     Route: 048
     Dates: start: 201804
  2. FOLIC ACID. [Concomitant]
     Active Substance: FOLIC ACID
     Dosage: UNK (200 MG/M 400 MG ABSOLUTE)
     Route: 042
     Dates: start: 20180605
  3. FOLIC ACID. [Concomitant]
     Active Substance: FOLIC ACID
     Dosage: UNK (200 MG/M 400 MG ABSOLUTE)
     Route: 042
     Dates: start: 20180522
  4. ALLOPURINOL. [Concomitant]
     Active Substance: ALLOPURINOL
     Indication: HYPERURICAEMIA
     Dosage: 300 MILLIGRAM, QD
     Route: 048
  5. VITAMIN B12 [Concomitant]
     Active Substance: CYANOCOBALAMIN
     Dosage: 1000 MICROGRAM, QW
     Route: 058
  6. VITAMIN B12 [Concomitant]
     Active Substance: CYANOCOBALAMIN
     Dosage: 100 MILLIGRAM, QW (100 MG, QW (WEDNESDAY))
     Route: 065
  7. ELIQUIS [Concomitant]
     Active Substance: APIXABAN
     Dosage: 10 MILLIGRAM, QD ( 5 MG, BID)
     Route: 065
  8. TAMSULOSIN [Concomitant]
     Active Substance: TAMSULOSIN
     Indication: BENIGN PROSTATIC HYPERPLASIA
     Dosage: UNK, QD(0.4 OT, QD)
     Route: 048
  9. FERRO SANOL [Concomitant]
     Active Substance: FERROUS GLYCINE SULFATE
     Indication: PRODUCT USED FOR UNKNOWN INDICATION
     Dosage: 1 DF, BID (MORNING AND EVENING)
     Route: 048
  10. FOLIC ACID. [Concomitant]
     Active Substance: FOLIC ACID
     Dosage: UNK (200 MG/M 400 MG ABSOLUTE)
     Route: 042
     Dates: start: 20180605
  11. VALSARTAN. [Suspect]
     Active Substance: VALSARTAN
     Dosage: UNK
     Route: 065
     Dates: start: 2018
  12. OXALIPLATIN. [Suspect]
     Active Substance: OXALIPLATIN
     Dosage: UNK(85 MG/M2/170 MG ABSOLUTE)
     Route: 065
     Dates: start: 20180504
  13. PARACETAMOL [Concomitant]
     Active Substance: ACETAMINOPHEN
     Indication: PAIN
     Dosage: 1500 MILLIGRAM, QD (500 MG TID)
     Route: 065
  14. VALSARTAN. [Suspect]
     Active Substance: VALSARTAN
     Indication: HYPERTENSION
     Dosage: 160 MG, QD (MORNING)
     Route: 065
     Dates: start: 20120521, end: 201804
  15. PENICILLIN                         /00042301/ [Suspect]
     Active Substance: PENICILLIN
     Indication: SURGERY
     Dosage: UNK
     Route: 065
     Dates: start: 2018, end: 2018
  16. LERCANIDIPINE [Concomitant]
     Active Substance: LERCANIDIPINE
     Indication: PRODUCT USED FOR UNKNOWN INDICATION
     Dosage: 10 MG, BID (MORNING AND EVENING)
     Route: 065
  17. FOLIC ACID. [Concomitant]
     Active Substance: FOLIC ACID
     Indication: PRODUCT USED FOR UNKNOWN INDICATION
     Dosage: 5 MILLIGRAM, Q2W (5 MG BIW)
     Route: 065
  18. VITAMIN B12 [Concomitant]
     Active Substance: CYANOCOBALAMIN
     Indication: VITAMIN B12 DEFICIENCY
     Dosage: 100 MILLIGRAM, QW (WEDNESDAY)
  19. OXALIPLATIN. [Suspect]
     Active Substance: OXALIPLATIN
     Indication: SIGNET-RING CELL CARCINOMA
     Dosage: UNK, CYCLE(5 OT, CYCLIC)
  20. VALSACOR [Concomitant]
     Active Substance: VALSARTAN
     Indication: PRODUCT USED FOR UNKNOWN INDICATION
     Dosage: 160 MILLIGRAM, QD
     Route: 065
  21. FOLIC ACID. [Concomitant]
     Active Substance: FOLIC ACID
     Dosage: UNK (200 MG/M 400 MG ABSOLUTE)
     Route: 042
     Dates: start: 20180522
  22. PANTOPRAZOLE [Concomitant]
     Active Substance: PANTOPRAZOLE
     Indication: PRODUCT USED FOR UNKNOWN INDICATION
     Dosage: 280 MILLIGRAM, QD (140 MG, BID MORNING AND EVENING))
     Route: 048
  23. PANTOPRAZOLE [Concomitant]
     Active Substance: PANTOPRAZOLE
     Dosage: 80 MILLIGRAM, QD ( 40 UNK)
     Route: 048
  24. ELIQUIS [Concomitant]
     Active Substance: APIXABAN
     Indication: PRODUCT USED FOR UNKNOWN INDICATION
     Dosage: 5 MG, QD (MORNING AND EVENING)
     Route: 065

REACTIONS (73)
  - Acute kidney injury [Recovered/Resolved with Sequelae]
  - Vascular pseudoaneurysm [Recovered/Resolved with Sequelae]
  - Iron deficiency anaemia [Recovered/Resolved with Sequelae]
  - Dyspnoea [Recovered/Resolved with Sequelae]
  - Weight increased [Unknown]
  - Hepatomegaly [Unknown]
  - Hernia [Unknown]
  - Ulcerative gastritis [Unknown]
  - Occult blood positive [Recovered/Resolved with Sequelae]
  - Gastroduodenal haemorrhage [Unknown]
  - Hepatic steatosis [Unknown]
  - Dyslipidaemia [Unknown]
  - Abdominal pain [Unknown]
  - Gastritis [Unknown]
  - Flatulence [Unknown]
  - Chest pain [Recovered/Resolved]
  - Impaired healing [Recovered/Resolved with Sequelae]
  - Peritonitis [Unknown]
  - Dizziness [Unknown]
  - Dysphonia [Unknown]
  - Insomnia [Unknown]
  - Dyspepsia [Recovered/Resolved with Sequelae]
  - Anhedonia [Not Recovered/Not Resolved]
  - Polyneuropathy [Unknown]
  - Gastrointestinal disorder [Recovered/Resolved]
  - Coronary artery disease [Unknown]
  - Hepatic seroma [Unknown]
  - Post inflammatory pigmentation change [Unknown]
  - Asthenia [Recovered/Resolved]
  - Cough [Unknown]
  - Vitamin B12 deficiency [Unknown]
  - Dysstasia [Unknown]
  - Pulmonary embolism [Recovered/Resolved with Sequelae]
  - Pancreatic failure [Unknown]
  - Social avoidant behaviour [Not Recovered/Not Resolved]
  - Oesophageal ulcer [Unknown]
  - Osteochondrosis [Unknown]
  - Merycism [Unknown]
  - Depression [Recovered/Resolved]
  - Chills [Recovering/Resolving]
  - Pleurisy [Unknown]
  - Gastritis bacterial [Unknown]
  - Dehiscence [Recovered/Resolved with Sequelae]
  - Sleep disorder [Recovered/Resolved]
  - Sensory disturbance [Not Recovered/Not Resolved]
  - Night sweats [Recovered/Resolved]
  - Ulnar nerve injury [Unknown]
  - Pyrexia [Unknown]
  - Diarrhoea [Unknown]
  - Pleural effusion [Unknown]
  - Emphysema [Unknown]
  - Hypertension [Recovering/Resolving]
  - Erythema [Unknown]
  - Deep vein thrombosis [Recovered/Resolved with Sequelae]
  - Gastric cancer [Unknown]
  - Anxiety [Not Recovered/Not Resolved]
  - Neuropathy peripheral [Unknown]
  - Depressed mood [Not Recovered/Not Resolved]
  - Pneumonia [Recovering/Resolving]
  - Lymphadenopathy mediastinal [Unknown]
  - Memory impairment [Unknown]
  - Internal haemorrhage [Recovered/Resolved]
  - Blood creatinine increased [Recovered/Resolved with Sequelae]
  - Gastrointestinal adenocarcinoma [Recovered/Resolved with Sequelae]
  - Lymphadenopathy [Recovered/Resolved with Sequelae]
  - Fear [Not Recovered/Not Resolved]
  - Disturbance in attention [Not Recovered/Not Resolved]
  - Hyperhidrosis [Recovered/Resolved]
  - Fatigue [Not Recovered/Not Resolved]
  - Hypertensive crisis [Recovered/Resolved]
  - Palpitations [Unknown]
  - Paraesthesia [Unknown]
  - Nausea [Unknown]

NARRATIVE: CASE EVENT DATE: 2016
